FAERS Safety Report 26144783 (Version 1)
Quarter: 2025Q4

REPORT INFORMATION
  Report Type: Spontaneous
  Country: US (occurrence: None)
  Receive Date: 20251211
  Receipt Date: 20251211
  Transmission Date: 20260117
  Serious: Yes (Hospitalization)
  Sender: FDA-CTU
  Company Number: None

PATIENT
  Age: 75 Year
  Sex: Female
  Weight: 61.4 kg

DRUGS (2)
  1. PONATINIB [Suspect]
     Active Substance: PONATINIB
     Dosage: OTHER FREQUENCY : LAST DISPENSED 10/24/2025.  WILL CONFIRM PATIENT COMPLIANCE WITH DRUG FOLLOWING PATIENT RETURN OF  M;
     Dates: end: 20251024
  2. VINCRISTINE [Suspect]
     Active Substance: VINCRISTINE
     Dates: end: 20251121

REACTIONS (6)
  - Acute myocardial infarction [None]
  - Dilated cardiomyopathy [None]
  - Coronary artery disease [None]
  - Stress cardiomyopathy [None]
  - Therapy interrupted [None]
  - Blood creatine increased [None]

NARRATIVE: CASE EVENT DATE: 20251202
